FAERS Safety Report 4332548-2 (Version None)
Quarter: 2004Q1

REPORT INFORMATION
  Report Type: 
  Country: None (occurrence: None)
  Receive Date: 20040330
  Receipt Date: 20040318
  Transmission Date: 20041129
  Serious: Yes (Life-Threatening)
  Sender: FDA-Public Use
  Company Number: GB-JNJFOC-20040304274

PATIENT
  Age: 79 Year
  Sex: Female
  Weight: 45 kg

DRUGS (2)
  1. RISPERDAL [Suspect]
     Indication: AGITATION
     Dosage: 0.5 MG, ORAL
     Route: 048
     Dates: start: 20040222, end: 20040224
  2. DONEPEZIL HCL [Concomitant]

REACTIONS (2)
  - BALANCE DISORDER [None]
  - TRANSIENT ISCHAEMIC ATTACK [None]
